FAERS Safety Report 24900125 (Version 4)
Quarter: 2025Q4

REPORT INFORMATION
  Report Type: Report from Study
  Country: CA (occurrence: CA)
  Receive Date: 20250129
  Receipt Date: 20251203
  Transmission Date: 20260117
  Serious: Yes (Other)
  Sender: TAKEDA
  Company Number: CA-TAKEDA-2025TUS008774

PATIENT
  Age: 44 Year
  Sex: Male

DRUGS (4)
  1. VEDOLIZUMAB [Suspect]
     Active Substance: VEDOLIZUMAB
     Indication: Colitis ulcerative
     Dosage: 300 MILLIGRAM
  2. VEDOLIZUMAB [Suspect]
     Active Substance: VEDOLIZUMAB
     Dosage: 300 MILLIGRAM, Q4WEEKS
     Dates: start: 20250926
  3. MESALAMINE [Concomitant]
     Active Substance: MESALAMINE
     Dosage: 4.8 GRAM, QD
     Dates: start: 202210
  4. Cortiment [Concomitant]
     Dosage: 9 MILLIGRAM, QD
     Dates: start: 20230906

REACTIONS (6)
  - Colitis ulcerative [Unknown]
  - Haematochezia [Unknown]
  - Frequent bowel movements [Unknown]
  - Impaired work ability [Unknown]
  - Off label use [Unknown]
  - Social problem [Unknown]

NARRATIVE: CASE EVENT DATE: 20250926
